FAERS Safety Report 5471097-5 (Version None)
Quarter: 2007Q3

REPORT INFORMATION
  Report Type: 
  Country: None (occurrence: None)
  Receive Date: 20070928
  Receipt Date: 20070918
  Transmission Date: 20080115
  Serious: Yes (Hospitalization, Other)
  Sender: FDA-Public Use
  Company Number: US-JNJFOC-20050404840

PATIENT
  Sex: Female
  Weight: 73.94 kg

DRUGS (14)
  1. DURAGESIC-100 [Suspect]
     Route: 062
  2. DURAGESIC-100 [Suspect]
     Route: 062
  3. DURAGESIC-100 [Suspect]
     Route: 062
  4. DURAGESIC-100 [Suspect]
     Route: 062
  5. DURAGESIC-100 [Suspect]
     Route: 062
  6. DURAGESIC-100 [Suspect]
     Indication: PAIN
     Route: 062
  7. ZANAFLEX [Suspect]
     Indication: PAIN
  8. ACTIQ [Concomitant]
  9. ROBAXIN [Concomitant]
  10. GABITRIL [Concomitant]
  11. NEURONTIN [Concomitant]
  12. HYDROCODONE BITARTRATE [Concomitant]
  13. ZOLOFT [Concomitant]
  14. VIOXX [Concomitant]

REACTIONS (14)
  - APPLICATION SITE IRRITATION [None]
  - ASTHENIA [None]
  - DEVICE LEAKAGE [None]
  - DIZZINESS [None]
  - FALL [None]
  - HYPOAESTHESIA [None]
  - HYPOTENSION [None]
  - HYPOTHYROIDISM [None]
  - NAUSEA [None]
  - NODAL ARRHYTHMIA [None]
  - OVERDOSE [None]
  - SKIN LACERATION [None]
  - SYNCOPE [None]
  - TREMOR [None]
